FAERS Safety Report 22366228 (Version 16)
Quarter: 2025Q1

REPORT INFORMATION
  Report Type: Report from Study
  Country: US (occurrence: US)
  Receive Date: 20230525
  Receipt Date: 20250306
  Transmission Date: 20250408
  Serious: Yes (Other)
  Sender: TAKEDA
  Company Number: US-TAKEDA-US202007144

PATIENT
  Age: 11 Year
  Sex: Male
  Weight: 54 kg

DRUGS (23)
  1. HUMAN IMMUNOGLOBULIN G [Suspect]
     Active Substance: HUMAN IMMUNOGLOBULIN G
     Indication: Primary immunodeficiency syndrome
     Dosage: 4 GRAM, 1/WEEK
     Dates: start: 20180215
  2. HUMAN IMMUNOGLOBULIN G [Suspect]
     Active Substance: HUMAN IMMUNOGLOBULIN G
     Indication: Immunodeficiency common variable
     Dosage: 4 GRAM, 1/WEEK
  3. HUMAN IMMUNOGLOBULIN G [Suspect]
     Active Substance: HUMAN IMMUNOGLOBULIN G
     Indication: Immunodeficiency
     Dosage: 4 GRAM, 1/WEEK
  4. HUMAN IMMUNOGLOBULIN G [Suspect]
     Active Substance: HUMAN IMMUNOGLOBULIN G
  5. HUMAN IMMUNOGLOBULIN G [Suspect]
     Active Substance: HUMAN IMMUNOGLOBULIN G
     Dosage: 6 GRAM, 1/WEEK
  6. ASTEPRO [Suspect]
     Active Substance: AZELASTINE HYDROCHLORIDE
     Indication: Product used for unknown indication
     Dosage: UNK, QD
  7. CLARITIN [Concomitant]
     Active Substance: LORATADINE
  8. ZYRTEC [Concomitant]
     Active Substance: CETIRIZINE HYDROCHLORIDE
  9. MOMETASONE FUROATE [Concomitant]
     Active Substance: MOMETASONE FUROATE
  10. ALLEGRA-D [Concomitant]
     Active Substance: FEXOFENADINE HYDROCHLORIDE\PSEUDOEPHEDRINE HYDROCHLORIDE
  11. PROAIR HFA [Concomitant]
     Active Substance: ALBUTEROL SULFATE
  12. EPIPEN JR [Concomitant]
     Active Substance: EPINEPHRINE
  13. ACETAMINOPHEN [Concomitant]
     Active Substance: ACETAMINOPHEN
  14. DIPHENHYDRAMINE [Concomitant]
     Active Substance: DIPHENHYDRAMINE
  15. Lmx [Concomitant]
  16. EPINEPHRINE [Concomitant]
     Active Substance: EPINEPHRINE
  17. ALBUTEROL [Concomitant]
     Active Substance: ALBUTEROL
  18. PROAIR HFA [Concomitant]
     Active Substance: ALBUTEROL SULFATE
  19. ALBUTEROL SULFATE [Concomitant]
     Active Substance: ALBUTEROL SULFATE
  20. FLONASE [Concomitant]
     Active Substance: FLUTICASONE PROPIONATE
  21. MOMETASONE [Concomitant]
     Active Substance: MOMETASONE
  22. EPIPEN [Concomitant]
     Active Substance: EPINEPHRINE
  23. DIPHENHYDRAMINE HYDROCHLORIDE [Concomitant]
     Active Substance: DIPHENHYDRAMINE HYDROCHLORIDE

REACTIONS (34)
  - Haemorrhage [Unknown]
  - Hypoaesthesia [Unknown]
  - Seasonal allergy [Unknown]
  - Injection site urticaria [Unknown]
  - Infusion site irritation [Unknown]
  - Product use issue [Unknown]
  - COVID-19 [Recovered/Resolved]
  - Pharyngitis streptococcal [Unknown]
  - Blood immunoglobulin G decreased [Unknown]
  - Staphylococcal infection [Unknown]
  - Insurance issue [Unknown]
  - Bronchitis [Unknown]
  - Infection [Unknown]
  - Device leakage [Unknown]
  - Viral infection [Unknown]
  - Nasal discomfort [Unknown]
  - Conjunctivitis [Unknown]
  - Infusion site haemorrhage [Unknown]
  - Influenza [Unknown]
  - Oropharyngeal pain [Recovering/Resolving]
  - Hypersensitivity [Unknown]
  - Infusion site bruising [Not Recovered/Not Resolved]
  - Infusion site pruritus [Unknown]
  - Infusion site pain [Unknown]
  - Nasopharyngitis [Unknown]
  - Multiple allergies [Not Recovered/Not Resolved]
  - Ingrowing nail [Unknown]
  - Paronychia [Unknown]
  - Infusion site discharge [Recovered/Resolved]
  - Incorrect drug administration rate [Unknown]
  - Drug hypersensitivity [Recovered/Resolved]
  - Cough [Unknown]
  - Headache [Recovering/Resolving]
  - Nausea [Recovering/Resolving]

NARRATIVE: CASE EVENT DATE: 20210830
